FAERS Safety Report 7077715-2 (Version None)
Quarter: 2010Q4

REPORT INFORMATION
  Report Type: 
  Country: None (occurrence: None)
  Receive Date: 20101101
  Receipt Date: 20101013
  Transmission Date: 20110411
  Serious: Yes (Death)
  Sender: FDA-Public Use
  Company Number: AU-BAYER-201043363GPV

PATIENT
  Age: 37 Year
  Sex: Male

DRUGS (6)
  1. DIAZEPAM [Suspect]
  2. NAPROXEN [Suspect]
  3. CODEINE [Suspect]
  4. IBUPROFEN [Suspect]
  5. METHADONE HCL [Suspect]
  6. TRAMADOL HCL [Suspect]

REACTIONS (1)
  - DRUG TOXICITY [None]
